FAERS Safety Report 17377250 (Version 1)
Quarter: 2020Q1

REPORT INFORMATION
  Report Type: Report from Study
  Country: MX (occurrence: MX)
  Receive Date: 20200206
  Receipt Date: 20200206
  Transmission Date: 20200409
  Serious: Yes (Death, Hospitalization)
  Sender: FDA-Public Use
  Company Number: MX-ROCHE-2539206

PATIENT
  Age: 55 Year
  Sex: Female

DRUGS (3)
  1. ABRAXIL [Suspect]
     Active Substance: DOXYCYCLINE
     Indication: TRIPLE NEGATIVE BREAST CANCER
     Route: 042
     Dates: start: 20191111, end: 20200107
  2. ATEZOLIZUMAB. [Suspect]
     Active Substance: ATEZOLIZUMAB
     Indication: TRIPLE NEGATIVE BREAST CANCER
     Dosage: 2 CYCLES
     Route: 042
     Dates: start: 20191111, end: 20200107
  3. ONDANSETRON [Concomitant]
     Active Substance: ONDANSETRON
     Route: 042
     Dates: start: 20191111, end: 20200107

REACTIONS (4)
  - Pyrexia [Not Recovered/Not Resolved]
  - Lung disorder [Fatal]
  - Respiratory failure [Fatal]
  - Hypertension [Not Recovered/Not Resolved]

NARRATIVE: CASE EVENT DATE: 20200106
